FAERS Safety Report 10064785 (Version 2)
Quarter: 2014Q2

REPORT INFORMATION
  Report Type: Spontaneous
  Country: CA (occurrence: CA)
  Receive Date: 20140408
  Receipt Date: 20140502
  Transmission Date: 20141212
  Serious: Yes (Life-Threatening, Other)
  Sender: FDA-Public Use
  Company Number: CA-ASTRAZENECA-2014SE24120

PATIENT
  Sex: 0

DRUGS (2)
  1. BRILINTA [Suspect]
     Route: 048
  2. PHENYTOIN [Interacting]
     Route: 065

REACTIONS (2)
  - Drug interaction [Unknown]
  - Cardiac arrest [Recovered/Resolved]
